FAERS Safety Report 9051906 (Version 1)
Quarter: 2013Q1

REPORT INFORMATION
  Report Type: Report from Study
  Country: JP (occurrence: JP)
  Receive Date: 20130207
  Receipt Date: 20130207
  Transmission Date: 20140127
  Serious: Yes (Other)
  Sender: FDA-Public Use
  Company Number: JP-009507513-2012SP000786

PATIENT
  Age: 67 Year
  Sex: Male
  Weight: 71 kg

DRUGS (15)
  1. REBETOL [Suspect]
     Indication: CHRONIC HEPATITIS C
     Dosage: 400 MG, TID
     Route: 048
     Dates: start: 20100723, end: 20101003
  2. REBETOL [Suspect]
     Dosage: 200 MG IN MORNING, 400 MG IN EVENING, BID
     Route: 048
     Dates: start: 20101004, end: 20110331
  3. REBETOL [Suspect]
     Dosage: 200 MG, BID
     Route: 048
     Dates: start: 20110401, end: 20110627
  4. FERON [Suspect]
     Indication: CHRONIC HEPATITIS C
     Dosage: 6 MILLION IU, QW
     Route: 041
     Dates: start: 20100723, end: 20100807
  5. FERON [Suspect]
     Dosage: 6 MILLION IU, TIW
     Route: 041
     Dates: start: 20100809, end: 20110629
  6. THYRADIN-S [Concomitant]
     Indication: HYPOTHYROIDISM
     Dosage: 3 DF, ONCE
     Route: 048
     Dates: start: 20100723
  7. TANATRIL [Concomitant]
     Indication: HYPERTENSION
     Dosage: 5 MG, ONCE
     Route: 048
     Dates: start: 20100723
  8. CALBLOCK [Concomitant]
     Indication: HYPERTENSION
     Dosage: 16 MG, QD
     Route: 048
     Dates: start: 20100723
  9. OMEPRAL [Concomitant]
     Indication: GASTROOESOPHAGEAL REFLUX DISEASE
     Dosage: 20 MG, ONCE
     Route: 048
     Dates: start: 20100723, end: 20110623
  10. ALESION [Concomitant]
     Indication: ECZEMA
     Dosage: 20 MG, QD
     Route: 048
     Dates: start: 20100723, end: 20110721
  11. SELBEX [Concomitant]
     Indication: GASTRITIS
     Dosage: 150 MG, QD
     Route: 048
     Dates: start: 20100913, end: 20110623
  12. LOXONIN [Concomitant]
     Indication: PYREXIA
     Dosage: 60 MG, PRN
     Route: 048
     Dates: start: 20100723, end: 20110623
  13. NEOPHAGEN INJECTION [Concomitant]
     Indication: CHRONIC HEPATITIS C
     Dosage: 100 ML, TIW
     Route: 051
     Dates: start: 20100623, end: 20100727
  14. URSO [Concomitant]
     Indication: CHRONIC HEPATITIS C
     Dosage: 600 MG, ONCE
     Route: 048
     Dates: start: 20100623, end: 20100727
  15. MEDET [Concomitant]
     Indication: DIABETES MELLITUS
     Dosage: 750 MG, ONCE
     Dates: start: 20100723, end: 20101013

REACTIONS (6)
  - Diabetes mellitus [Recovered/Resolved]
  - Blood glucose increased [Recovered/Resolved]
  - Pyrexia [Recovered/Resolved]
  - Proteinuria [Recovering/Resolving]
  - Blood creatine increased [Recovered/Resolved]
  - Iron deficiency anaemia [Recovered/Resolved]
